FAERS Safety Report 8095276-6 (Version None)
Quarter: 2012Q1

REPORT INFORMATION
  Report Type: 
  Country: None (occurrence: None)
  Receive Date: 20120129
  Receipt Date: 20111219
  Transmission Date: 20120608
  Serious: No
  Sender: FDA-Public Use
  Company Number: US-ABBOTT-11P-163-0884742-00

PATIENT
  Age: 61 Year
  Sex: Male

DRUGS (7)
  1. SULFASALAZINE [Concomitant]
     Indication: ARTHRITIS
     Dosage: DAILY
  2. IBUPROFEN [Concomitant]
     Indication: ARTHRITIS
  3. PREDNISONE TAB [Concomitant]
     Indication: ARTHRITIS
  4. FOLIC ACID [Concomitant]
     Indication: SUPPLEMENTATION THERAPY
  5. VITAMIN TAB [Concomitant]
     Indication: PRODUCT USED FOR UNKNOWN INDICATION
  6. HUMIRA [Suspect]
     Indication: PSORIATIC ARTHROPATHY
     Dates: start: 20110101
  7. METHOTREXATE [Concomitant]
     Indication: ARTHRITIS
     Route: 050

REACTIONS (1)
  - DRUG INEFFECTIVE [None]
